FAERS Safety Report 4805369-1 (Version None)
Quarter: 2005Q4

REPORT INFORMATION
  Report Type: 
  Country: None (occurrence: None)
  Receive Date: 20051018
  Receipt Date: 20051005
  Transmission Date: 20060501
  Serious: Yes (Death, Other)
  Sender: FDA-Public Use
  Company Number: 2005-BP-16792RO

PATIENT
  Age: 68 Year
  Sex: Male

DRUGS (3)
  1. CLARITHROMYCIN [Suspect]
     Indication: PNEUMONIA
     Dosage: 500 MG, BID (NR), PO
     Route: 048
  2. COLCHICINE (COLCHICINE) [Suspect]
     Indication: GOUT
     Dosage: 0.5 MG, TID (NR), PO; DAY 2 TO 11 OF HOSPITALIZATION
     Route: 048
  3. PIPERACILLIN-TAZOBACTAM (PIPERACILLIN W/TAZOBACTAM) [Concomitant]

REACTIONS (9)
  - BONE MARROW FAILURE [None]
  - DRUG INTERACTION [None]
  - DRUG TOXICITY [None]
  - GENERAL PHYSICAL HEALTH DETERIORATION [None]
  - HEPATIC FAILURE [None]
  - HEPATIC NECROSIS [None]
  - HYPOTENSION [None]
  - ILEUS PARALYTIC [None]
  - RENAL FAILURE ACUTE [None]
